FAERS Safety Report 8971944 (Version 2)
Quarter: 2013Q1

REPORT INFORMATION
  Report Type: Spontaneous
  Country: ES (occurrence: ES)
  Receive Date: 20121218
  Receipt Date: 20130110
  Transmission Date: 20140127
  Serious: Yes (Hospitalization, Other)
  Sender: FDA-Public Use
  Company Number: PHHY2012ES116371

PATIENT
  Age: 44 Year
  Sex: Female

DRUGS (9)
  1. FLUCONAZOLE [Suspect]
     Indication: VULVOVAGINAL CANDIDIASIS
     Dosage: 100 MG, PER DAY
  2. CICLOSPORIN [Interacting]
     Indication: LIVER TRANSPLANT
     Dosage: 350 MG, PER DAY
  3. CICLOSPORIN [Interacting]
     Dosage: 150 MG, Q12H
  4. CICLOSPORIN [Interacting]
     Dosage: 25 MG, QD
  5. LOPINAVIR W/RITONAVIR [Interacting]
     Indication: HIV INFECTION
     Dosage: 400/100MG, BID
  6. RALTEGRAVIR [Concomitant]
     Indication: HIV INFECTION
     Dosage: 800 MG, PER DAY
  7. LAMIVUDINA [Concomitant]
     Indication: HIV INFECTION
     Dosage: 300 MG, PER DAY
  8. MYCOPHENOLATE [Concomitant]
     Indication: HIV INFECTION
  9. MYCOPHENOLATE [Concomitant]
     Indication: LIVER TRANSPLANT

REACTIONS (5)
  - Anxiety [Unknown]
  - Immunosuppressant drug level increased [Recovering/Resolving]
  - Hepatotoxicity [Recovering/Resolving]
  - Blood bilirubin increased [Recovering/Resolving]
  - Drug interaction [Unknown]
